FAERS Safety Report 8955917 (Version 1)
Quarter: 2012Q4

REPORT INFORMATION
  Report Type: Report from Study
  Country: DK (occurrence: US)
  Receive Date: 20121210
  Receipt Date: 20121210
  Transmission Date: 20130627
  Serious: Yes (Hospitalization)
  Sender: FDA-Public Use
  Company Number: US-FRI-1000040917

PATIENT
  Age: 47 Year
  Sex: Female

DRUGS (9)
  1. LEXAPRO [Suspect]
     Indication: MAJOR DEPRESSION
     Dosage: 10 mg
     Route: 048
     Dates: start: 20110607, end: 20111210
  2. LUAF41156 [Suspect]
     Indication: MAJOR DEPRESSION
     Dosage: 3 mg
     Route: 048
     Dates: start: 20110607, end: 20111210
  3. LISINOPRIL [Suspect]
     Indication: HYPERTENSION
     Dosage: 20 mg
     Route: 048
     Dates: start: 20110204
  4. BABY ASPIRIN [Concomitant]
     Dates: start: 20110112
  5. LISINOPRIL/HCTZ [Concomitant]
     Dates: start: 20110204
  6. FLEXERIL [Concomitant]
     Dates: start: 20111201
  7. OXYCONTIN [Concomitant]
     Dates: start: 20111201
  8. OXYCODONE [Concomitant]
     Dates: start: 20111201
  9. NEURONTIN [Concomitant]
     Dates: start: 20110201

REACTIONS (2)
  - Back pain [Not Recovered/Not Resolved]
  - Sciatica [Not Recovered/Not Resolved]
